FAERS Safety Report 4611838-X (Version None)
Quarter: 2005Q2

REPORT INFORMATION
  Report Type: 
  Country: None (occurrence: None)
  Receive Date: 20050308
  Receipt Date: 20050110
  Transmission Date: 20051028
  Serious: Yes (Other)
  Sender: FDA-Public Use
  Company Number: 2005UW00485

PATIENT
  Age: 58 Year
  Sex: Female
  Weight: 90.718 kg

DRUGS (10)
  1. CRESTOR [Suspect]
     Indication: BLOOD CHOLESTEROL INCREASED
     Dosage: 10 MG PO
     Route: 048
     Dates: start: 20030901
  2. VITAMIN E [Concomitant]
  3. TOPROL-XL [Concomitant]
  4. ACCUPRIL [Concomitant]
  5. LASIX [Concomitant]
  6. CONCERTA [Concomitant]
  7. LEXAPRO [Concomitant]
  8. KLONOPIN [Concomitant]
  9. MENEST ^MONARCH^ [Concomitant]
  10. ESTRATEST [Concomitant]

REACTIONS (2)
  - HIGH DENSITY LIPOPROTEIN DECREASED [None]
  - LOW DENSITY LIPOPROTEIN INCREASED [None]
